FAERS Safety Report 24665353 (Version 1)
Quarter: 2024Q4

REPORT INFORMATION
  Report Type: Spontaneous
  Country: FR (occurrence: FR)
  Receive Date: 20241126
  Receipt Date: 20241126
  Transmission Date: 20250114
  Serious: Yes (Other)
  Sender: GILEAD
  Company Number: None

PATIENT
  Age: 44 Year
  Sex: Female
  Weight: 70 kg

DRUGS (1)
  1. BIKTARVY [Suspect]
     Active Substance: BICTEGRAVIR SODIUM\EMTRICITABINE\TENOFOVIR ALAFENAMIDE FUMARATE
     Indication: HIV infection
     Dosage: UNK
     Route: 065

REACTIONS (2)
  - Weight increased [Not Recovered/Not Resolved]
  - Diffuse alopecia [Not Recovered/Not Resolved]

NARRATIVE: CASE EVENT DATE: 20240531
